FAERS Safety Report 7480601-7 (Version None)
Quarter: 2011Q2

REPORT INFORMATION
  Report Type: 
  Country: None (occurrence: None)
  Receive Date: 20110516
  Receipt Date: 20110511
  Transmission Date: 20111010
  Serious: Yes (Death, Other)
  Sender: FDA-Public Use
  Company Number: BR-ASTELLAS-2011US002172

PATIENT
  Age: 22 Year
  Sex: Female

DRUGS (3)
  1. MYCOPHENOLATE MOFETIL [Concomitant]
     Indication: HEART TRANSPLANT
     Dosage: UNK
     Route: 065
  2. PREDNISONE [Concomitant]
     Indication: HEART TRANSPLANT
     Dosage: UNK
     Route: 065
  3. TACROLIMUS [Suspect]
     Indication: HEART TRANSPLANT
     Dosage: UNK
     Route: 065

REACTIONS (3)
  - SEPSIS [None]
  - HEART TRANSPLANT REJECTION [None]
  - DRUG INEFFECTIVE [None]
